FAERS Safety Report 9435343 (Version 1)
Quarter: 2013Q3

REPORT INFORMATION
  Report Type: Report from Study
  Country: US (occurrence: US)
  Receive Date: 20130801
  Receipt Date: 20130801
  Transmission Date: 20140515
  Serious: Yes (Hospitalization, Other)
  Sender: FDA-Public Use
  Company Number: US-ABBOTT-13P-163-1124412-00

PATIENT
  Age: 58 Year
  Sex: Female

DRUGS (4)
  1. HUMIRA [Suspect]
     Indication: COLITIS ULCERATIVE
     Dosage: LOADING DOSE
     Dates: start: 20130713, end: 20130713
  2. PRISTIQ [Concomitant]
     Indication: ANTIDEPRESSANT THERAPY
  3. TRAZODONE [Concomitant]
     Indication: INSOMNIA
     Dosage: 1 AT BEDTIME
  4. PROBIOTIC [Concomitant]

REACTIONS (5)
  - Gastrointestinal oedema [Not Recovered/Not Resolved]
  - Pain [Not Recovered/Not Resolved]
  - Gastrointestinal infection [Not Recovered/Not Resolved]
  - Erythema [Not Recovered/Not Resolved]
  - Gastrointestinal pain [Not Recovered/Not Resolved]
